FAERS Safety Report 9234480 (Version 2)
Quarter: 2013Q2

REPORT INFORMATION
  Report Type: Spontaneous
  Country: US (occurrence: US)
  Receive Date: 20130416
  Receipt Date: 20130416
  Transmission Date: 20140414
  Serious: No
  Sender: FDA-Public Use
  Company Number: US-BANPHARM-20120197

PATIENT
  Age: 54 Year
  Sex: Male
  Weight: 86.36 kg

DRUGS (3)
  1. ALEVE LIQUID GELS 220 MG [Suspect]
     Indication: BACK PAIN
     Dosage: 2 DF, 6-8 PER DAY,
     Route: 048
     Dates: start: 2009, end: 201204
  2. ALEVE LIQUID GELS 220 MG [Suspect]
     Indication: BACK PAIN
     Dosage: UNK, PRN, AT NIGHT,
     Route: 048
     Dates: start: 201204
  3. BAYER? ADVANCED ASPIRIN 500MG - 80S [Suspect]
     Indication: BACK PAIN
     Dosage: 2 EVERY 6 HOURS
     Route: 048
     Dates: start: 201202

REACTIONS (4)
  - Drug ineffective [Not Recovered/Not Resolved]
  - Diarrhoea [Not Recovered/Not Resolved]
  - Muscle spasms [Not Recovered/Not Resolved]
  - Incorrect dose administered [Unknown]
